FAERS Safety Report 4667375-X (Version None)
Quarter: 2005Q2

REPORT INFORMATION
  Report Type: 
  Country: None (occurrence: None)
  Receive Date: 20050520
  Receipt Date: 20050509
  Transmission Date: 20051028
  Serious: Yes (Other)
  Sender: FDA-Public Use
  Company Number: GB-BRISTOL-MYERS SQUIBB COMPANY-12963989

PATIENT
  Age: 22 Year
  Sex: Male
  Weight: 78 kg

DRUGS (1)
  1. ABILIFY [Suspect]
     Indication: SCHIZOPHRENIA
     Dosage: INCREASED TO 30 MG/DAY ON 20-APR-2005
     Route: 048
     Dates: start: 20050403

REACTIONS (2)
  - OBSESSIVE-COMPULSIVE DISORDER [None]
  - PSYCHOTIC DISORDER [None]
